FAERS Safety Report 4557449-6 (Version None)
Quarter: 2005Q1

REPORT INFORMATION
  Report Type: 
  Country: None (occurrence: None)
  Receive Date: 20050118
  Receipt Date: 20050106
  Transmission Date: 20050727
  Serious: Yes (Other)
  Sender: FDA-Public Use
  Company Number: 2004110914

PATIENT
  Age: 32 Year
  Sex: Female
  Weight: 76.6579 kg

DRUGS (2)
  1. ZANTAC 75 [Suspect]
     Indication: DYSPEPSIA
     Dosage: 4 TABLETS FOUR TIMES DAILY, ORAL
     Route: 048
  2. SALBUTAMOL (SALBUTAMOL) [Concomitant]

REACTIONS (6)
  - ABDOMINAL PAIN UPPER [None]
  - ANAL FISSURE [None]
  - CARDIAC DISORDER [None]
  - COAGULOPATHY [None]
  - MEDICATION ERROR [None]
  - RECTAL HAEMORRHAGE [None]
